FAERS Safety Report 10176248 (Version 13)
Quarter: 2020Q4

REPORT INFORMATION
  Report Type: Spontaneous
  Country: US (occurrence: US)
  Receive Date: 20140516
  Receipt Date: 20201130
  Transmission Date: 20210113
  Serious: No
  Sender: FDA-Public Use
  Company Number: US-PFIZER INC-2014133786

PATIENT
  Age: 53 Year
  Sex: Female

DRUGS (1)
  1. LYRICA [Suspect]
     Active Substance: PREGABALIN
     Indication: NEUROPATHY PERIPHERAL
     Dosage: 300 MG  (2 CAPSULES QAM,1 CAPSULE QPM, AND 2 CAPSULES QHS) 5 CAPSULES A DAY)
     Route: 048

REACTIONS (8)
  - Illness [Unknown]
  - Hypoacusis [Unknown]
  - Pain in extremity [Unknown]
  - Renal disorder [Unknown]
  - Cardiac murmur [Unknown]
  - Abdominal pain upper [Unknown]
  - Prescribed overdose [Unknown]
  - Liver disorder [Unknown]
